FAERS Safety Report 8814443 (Version 1)
Quarter: 2012Q4

REPORT INFORMATION
  Report Type: Spontaneous
  Country: US (occurrence: None)
  Receive Date: 20120927
  Receipt Date: 20120927
  Transmission Date: 20130627
  Serious: Yes (Hospitalization)
  Sender: FDA-Public Use
  Company Number: None

PATIENT
  Age: 32 Year
  Sex: Male

DRUGS (3)
  1. ACYCLOVIR [Suspect]
     Route: 048
  2. GABAPENTIN [Concomitant]
  3. PREDNISONE [Concomitant]

REACTIONS (4)
  - Convulsion [None]
  - Unresponsive to stimuli [None]
  - Musculoskeletal stiffness [None]
  - Pain [None]
